FAERS Safety Report 11467902 (Version 2)
Quarter: 2015Q4

REPORT INFORMATION
  Report Type: Spontaneous
  Country: JP (occurrence: JP)
  Receive Date: 20150908
  Receipt Date: 20151218
  Transmission Date: 20160304
  Serious: Yes (Death, Life-Threatening, Hospitalization)
  Sender: FDA-Public Use
  Company Number: JP-BAYER-2015-005331

PATIENT
  Age: 81 Year
  Sex: Female
  Weight: 43.2 kg

DRUGS (1)
  1. STIVARGA [Suspect]
     Active Substance: REGORAFENIB
     Indication: COLORECTAL CANCER
     Dosage: 40 MG, QD
     Route: 048
     Dates: start: 20140701, end: 20140705

REACTIONS (4)
  - Hepatic function abnormal [Recovered/Resolved]
  - Palmar-plantar erythrodysaesthesia syndrome [Recovering/Resolving]
  - Disseminated intravascular coagulation [Recovered/Resolved]
  - Metastases to liver [Fatal]

NARRATIVE: CASE EVENT DATE: 20140708
